FAERS Safety Report 15595124 (Version 1)
Quarter: 2018Q4

REPORT INFORMATION
  Report Type: Spontaneous
  Country: RS (occurrence: RS)
  Receive Date: 20181107
  Receipt Date: 20181107
  Transmission Date: 20190205
  Serious: Yes (Other)
  Sender: FDA-Public Use
  Company Number: PHHY2018RS110013

PATIENT
  Age: 55 Year
  Sex: Female

DRUGS (9)
  1. VOTRIENT [Suspect]
     Active Substance: PAZOPANIB HYDROCHLORIDE
     Dosage: 800 MG, QD (SECOND CYCLE)
     Route: 065
     Dates: start: 201802
  2. VOTRIENT [Suspect]
     Active Substance: PAZOPANIB HYDROCHLORIDE
     Dosage: 800 MG, QD (FOUURTH CYCLE)
     Route: 065
     Dates: start: 201804
  3. VOTRIENT [Suspect]
     Active Substance: PAZOPANIB HYDROCHLORIDE
     Dosage: 800 MG, QD
     Route: 065
     Dates: start: 201806
  4. VOTRIENT [Suspect]
     Active Substance: PAZOPANIB HYDROCHLORIDE
     Dosage: 800 MG, QD
     Route: 065
     Dates: start: 20180813
  5. VOTRIENT [Suspect]
     Active Substance: PAZOPANIB HYDROCHLORIDE
     Indication: RENAL CELL CARCINOMA
     Dosage: 800 MG, QD (FIRST CYCLE)
     Route: 065
     Dates: start: 201801
  6. VOTRIENT [Suspect]
     Active Substance: PAZOPANIB HYDROCHLORIDE
     Dosage: 800 MG, QD (THIRD CYCLE)
     Route: 065
     Dates: start: 201803
  7. VOTRIENT [Suspect]
     Active Substance: PAZOPANIB HYDROCHLORIDE
     Dosage: 800 MG, QD
     Route: 065
     Dates: start: 201805
  8. VOTRIENT [Suspect]
     Active Substance: PAZOPANIB HYDROCHLORIDE
     Dosage: 800 MG, QD
     Route: 065
     Dates: start: 201807
  9. VOTRIENT [Suspect]
     Active Substance: PAZOPANIB HYDROCHLORIDE
     Dosage: UNK
     Route: 065

REACTIONS (15)
  - Metastatic renal cell carcinoma [Unknown]
  - Hair colour changes [Recovered/Resolved]
  - Pain [Unknown]
  - Blood thyroid stimulating hormone increased [Recovered/Resolved]
  - Fatigue [Recovered/Resolved]
  - Aspartate aminotransferase increased [Unknown]
  - Thyroxine free increased [Recovered/Resolved]
  - Nausea [Recovered/Resolved]
  - Malignant neoplasm progression [Unknown]
  - Blood creatinine increased [Recovered/Resolved]
  - Diarrhoea [Recovered/Resolved]
  - Haematocrit decreased [Unknown]
  - Liver injury [Unknown]
  - Hypertension [Recovered/Resolved]
  - Alanine aminotransferase increased [Unknown]

NARRATIVE: CASE EVENT DATE: 201802
